FAERS Safety Report 4279130-3 (Version None)
Quarter: 2004Q1

REPORT INFORMATION
  Report Type: 
  Country: None (occurrence: None)
  Receive Date: 20040122
  Receipt Date: 20031118
  Transmission Date: 20041129
  Serious: Yes (Other)
  Sender: FDA-Public Use
  Company Number: US064177 HQWYE221020NOV03

PATIENT
  Sex: 0

DRUGS (1)
  1. ENBREL [Suspect]

REACTIONS (1)
  - COCCIDIOIDOMYCOSIS [None]
